FAERS Safety Report 13672934 (Version 1)
Quarter: 2017Q2

REPORT INFORMATION
  Report Type: Spontaneous
  Country: US (occurrence: US)
  Receive Date: 20170621
  Receipt Date: 20170621
  Transmission Date: 20170830
  Serious: Yes (Life-Threatening, Hospitalization, Other)
  Sender: FDA-Public Use
  Company Number: US-LUPIN PHARMACEUTICALS INC.-2017-03174

PATIENT
  Age: 47 Year
  Sex: Female

DRUGS (2)
  1. ALPRAZOLAM. [Concomitant]
     Active Substance: ALPRAZOLAM
     Indication: PRODUCT USED FOR UNKNOWN INDICATION
     Dosage: UNK
     Route: 065
  2. BUPROPION. [Suspect]
     Active Substance: BUPROPION
     Indication: PRODUCT USED FOR UNKNOWN INDICATION
     Dosage: 10 CAPSULES, SINGLE
     Route: 065

REACTIONS (7)
  - Suicide attempt [Unknown]
  - Somnolence [Recovered/Resolved]
  - Overdose [Unknown]
  - Generalised tonic-clonic seizure [Recovered/Resolved]
  - Cardiac arrest [Recovered/Resolved]
  - Electroencephalogram abnormal [Recovered/Resolved]
  - Areflexia [Recovered/Resolved]
